FAERS Safety Report 10101978 (Version 1)
Quarter: 2014Q2

REPORT INFORMATION
  Report Type: Spontaneous
  Country: US (occurrence: US)
  Receive Date: 20140424
  Receipt Date: 20140424
  Transmission Date: 20141212
  Serious: Yes (Death)
  Sender: FDA-Public Use
  Company Number: US-BRISTOL-MYERS SQUIBB COMPANY-20644621

PATIENT
  Age: 77 Year
  Sex: Male

DRUGS (11)
  1. SPRYCEL [Suspect]
     Indication: MYELOID LEUKAEMIA
     Dosage: TABS
     Dates: start: 20121015
  2. CLOPIDOGREL BISULFATE [Concomitant]
  3. DILTIAZEM HCL [Concomitant]
  4. FINASTERIDE [Concomitant]
  5. KLOR-CON [Concomitant]
  6. LISINOPRIL [Concomitant]
  7. LOSARTAN [Concomitant]
  8. OMEPRAZOLE [Concomitant]
  9. SIMVASTATIN [Concomitant]
  10. VITAMIN D [Concomitant]
  11. WARFARIN [Concomitant]

REACTIONS (1)
  - Death [Fatal]
